FAERS Safety Report 6647852-2 (Version None)
Quarter: 2010Q1

REPORT INFORMATION
  Report Type: 
  Country: None (occurrence: None)
  Receive Date: 20100324
  Receipt Date: 20100311
  Transmission Date: 20100710
  Serious: Yes (Other)
  Sender: FDA-Public Use
  Company Number: JP-JNJFOC-20100110330

PATIENT
  Sex: Female
  Weight: 54 kg

DRUGS (13)
  1. DOXORUBICIN HCL [Suspect]
     Indication: OVARIAN CANCER RECURRENT
     Route: 042
     Dates: start: 20090611, end: 20091001
  2. DOXORUBICIN HCL [Suspect]
     Route: 042
     Dates: start: 20090611, end: 20091001
  3. DOXORUBICIN HCL [Suspect]
     Route: 042
     Dates: start: 20090611, end: 20091001
  4. DOXORUBICIN HCL [Suspect]
     Route: 042
     Dates: start: 20090611, end: 20091001
  5. DOXORUBICIN HCL [Suspect]
     Route: 042
     Dates: start: 20090611, end: 20091001
  6. SEROTONE [Concomitant]
     Indication: PROPHYLAXIS
     Route: 042
  7. HEPARIN [Concomitant]
     Indication: PALMAR-PLANTAR ERYTHRODYSAESTHESIA SYNDROME
     Route: 061
  8. RINDERON [Concomitant]
     Indication: PALMAR-PLANTAR ERYTHRODYSAESTHESIA SYNDROME
     Route: 061
  9. DEXALTIN [Concomitant]
     Indication: STOMATITIS
     Route: 049
  10. LOXONIN [Concomitant]
     Route: 048
  11. GLYSENNID [Concomitant]
     Route: 048
  12. RESTAMIN [Concomitant]
     Indication: PALMAR-PLANTAR ERYTHRODYSAESTHESIA SYNDROME
     Route: 061
  13. MUCOSTA [Concomitant]
     Indication: PROPHYLAXIS
     Route: 048

REACTIONS (1)
  - INTERSTITIAL LUNG DISEASE [None]
